FAERS Safety Report 12962026 (Version 1)
Quarter: 2016Q4

REPORT INFORMATION
  Report Type: Spontaneous
  Country: US (occurrence: US)
  Receive Date: 20161121
  Receipt Date: 20161121
  Transmission Date: 20170207
  Serious: Yes (Death)
  Sender: FDA-Public Use
  Company Number: US-INSYS THERAPEUTICS, INC-INS201611-000695

PATIENT
  Age: 74 Year
  Sex: Female
  Weight: 70.94 kg

DRUGS (31)
  1. COENZYME Q10 [Concomitant]
     Active Substance: UBIDECARENONE
  2. NUCYNTA [Concomitant]
     Active Substance: TAPENTADOL HYDROCHLORIDE
  3. MARIJUANA [Concomitant]
     Active Substance: CANNABIS SATIVA SUBSP. INDICA TOP
     Indication: NAUSEA
  4. LORAZEPAM. [Concomitant]
     Active Substance: LORAZEPAM
  5. ALIMTA [Concomitant]
     Active Substance: PEMETREXED DISODIUM
     Indication: NON-SMALL CELL LUNG CANCER
     Dates: start: 20151117
  6. SUBSYS [Suspect]
     Active Substance: FENTANYL
     Indication: BREAKTHROUGH PAIN
  7. COMPAZINE [Concomitant]
     Active Substance: PROCHLORPERAZINE MALEATE
  8. LIDOCAINE. [Concomitant]
     Active Substance: LIDOCAINE
  9. COLACE [Concomitant]
     Active Substance: DOCUSATE SODIUM
     Indication: CONSTIPATION
  10. ZOFRAN [Concomitant]
     Active Substance: ONDANSETRON HYDROCHLORIDE
     Indication: NAUSEA
  11. ZITHROMAX [Concomitant]
     Active Substance: AZITHROMYCIN DIHYDRATE
     Indication: NASAL CONGESTION
  12. FISH OIL OMEGA [Concomitant]
  13. MOTRIN IB [Concomitant]
     Active Substance: IBUPROFEN
  14. PROAIR HFA [Concomitant]
     Active Substance: ALBUTEROL SULFATE
  15. VITAMIN D3 [Concomitant]
     Active Substance: CHOLECALCIFEROL
  16. XOPENEX [Concomitant]
     Active Substance: LEVALBUTEROL HYDROCHLORIDE
  17. XELODA [Concomitant]
     Active Substance: CAPECITABINE
     Dates: start: 200802, end: 200804
  18. AVASTIN [Concomitant]
     Active Substance: BEVACIZUMAB
  19. ATIVAN [Concomitant]
     Active Substance: LORAZEPAM
     Indication: NAUSEA
  20. DIOVAN [Concomitant]
     Active Substance: VALSARTAN
  21. CARBOPLATIN. [Concomitant]
     Active Substance: CARBOPLATIN
     Indication: NON-SMALL CELL LUNG CANCER
     Dates: start: 20151117
  22. CALCIUM [Concomitant]
     Active Substance: CALCIUM
  23. NORCO [Concomitant]
     Active Substance: ACETAMINOPHEN\HYDROCODONE BITARTRATE
  24. FOLFOX [Concomitant]
     Active Substance: FLUOROURACIL\LEUCOVORIN CALCIUM\OXALIPLATIN
  25. PAXIL [Concomitant]
     Active Substance: PAROXETINE HYDROCHLORIDE
     Indication: DEPRESSION
  26. ZITHROMAX [Concomitant]
     Active Substance: AZITHROMYCIN DIHYDRATE
     Indication: COUGH
  27. DICLOFENAC [Concomitant]
     Active Substance: DICLOFENAC
  28. OXYCODONE [Concomitant]
     Active Substance: OXYCODONE
  29. IRINOTECAN [Concomitant]
     Active Substance: IRINOTECAN
     Dates: start: 200802, end: 200804
  30. MIRALAX [Concomitant]
     Active Substance: POLYETHYLENE GLYCOL 3350
     Indication: CONSTIPATION
  31. OPDIVO [Concomitant]
     Active Substance: NIVOLUMAB
     Dates: start: 20160127

REACTIONS (1)
  - Death [Fatal]

NARRATIVE: CASE EVENT DATE: 201604
